FAERS Safety Report 19237175 (Version 1)
Quarter: 2021Q2

REPORT INFORMATION
  Report Type: Spontaneous
  Country: US (occurrence: US)
  Receive Date: 20210508
  Receipt Date: 20210508
  Transmission Date: 20210717
  Serious: Yes (Hospitalization)
  Sender: FDA-Public Use
  Company Number: None

PATIENT
  Age: 72 Year
  Sex: Female
  Weight: 67.5 kg

DRUGS (3)
  1. METHOTREXATE. [Suspect]
     Active Substance: METHOTREXATE
     Dates: end: 20210422
  2. CYTARABINE. [Suspect]
     Active Substance: CYTARABINE
     Dates: end: 20210423
  3. SPRYCEL [Suspect]
     Active Substance: DASATINIB
     Dates: end: 20210501

REACTIONS (5)
  - Paronychia [None]
  - Anaemia [None]
  - Neutrophil count decreased [None]
  - Platelet count decreased [None]
  - Epistaxis [None]

NARRATIVE: CASE EVENT DATE: 20210501
